FAERS Safety Report 17632003 (Version 3)
Quarter: 2020Q3

REPORT INFORMATION
  Report Type: Spontaneous
  Country: US (occurrence: US)
  Receive Date: 20200406
  Receipt Date: 20200722
  Transmission Date: 20201102
  Serious: Yes (Other)
  Sender: FDA-Public Use
  Company Number: US-SA-2020SA085318

PATIENT

DRUGS (9)
  1. ARAVA [Suspect]
     Active Substance: LEFLUNOMIDE
     Indication: PRODUCT USED FOR UNKNOWN INDICATION
     Dosage: UNK
     Route: 065
  2. BASAGLAR [Concomitant]
     Active Substance: INSULIN GLARGINE
     Indication: PRODUCT USED FOR UNKNOWN INDICATION
  3. METHOTREXATE. [Concomitant]
     Active Substance: METHOTREXATE
     Indication: PRODUCT USED FOR UNKNOWN INDICATION
  4. DICLOFENAC [Concomitant]
     Active Substance: DICLOFENAC
     Indication: PRODUCT USED FOR UNKNOWN INDICATION
  5. PODIAPN [Concomitant]
     Active Substance: DIETARY SUPPLEMENT
     Indication: PRODUCT USED FOR UNKNOWN INDICATION
  6. TRAMADOL. [Concomitant]
     Active Substance: TRAMADOL
     Indication: PRODUCT USED FOR UNKNOWN INDICATION
  7. PREDNISONE. [Concomitant]
     Active Substance: PREDNISONE
     Indication: PRODUCT USED FOR UNKNOWN INDICATION
  8. HUMIRA [Suspect]
     Active Substance: ADALIMUMAB
     Indication: RHEUMATOID ARTHRITIS
     Dosage: 40 MG (1 IN 14?2)
     Route: 058
     Dates: start: 20190917
  9. PLAQUENIL [Concomitant]
     Active Substance: HYDROXYCHLOROQUINE SULFATE
     Indication: PRODUCT USED FOR UNKNOWN INDICATION

REACTIONS (34)
  - Limb discomfort [Not Recovered/Not Resolved]
  - Pain [Unknown]
  - Gait disturbance [Not Recovered/Not Resolved]
  - Muscle tone disorder [Unknown]
  - Dysstasia [Unknown]
  - Joint stiffness [Not Recovered/Not Resolved]
  - Joint swelling [Not Recovered/Not Resolved]
  - Hypoaesthesia [Unknown]
  - Musculoskeletal discomfort [Unknown]
  - Stress [Unknown]
  - Back pain [Unknown]
  - Anxiety [Unknown]
  - Abdominal pain [Not Recovered/Not Resolved]
  - Tinnitus [Unknown]
  - Arthralgia [Not Recovered/Not Resolved]
  - Diabetes mellitus [Unknown]
  - Impaired self-care [Unknown]
  - Osteoarthritis [Unknown]
  - Incorrect dose administered [Unknown]
  - Neuropathy peripheral [Not Recovered/Not Resolved]
  - Mobility decreased [Unknown]
  - Decreased appetite [Unknown]
  - Cold sweat [Unknown]
  - Pain in extremity [Unknown]
  - Paraesthesia [Unknown]
  - Device issue [Unknown]
  - Nerve injury [Unknown]
  - Arthropathy [Unknown]
  - Knee operation [Unknown]
  - Hyperhidrosis [Unknown]
  - Back disorder [Not Recovered/Not Resolved]
  - Muscular weakness [Unknown]
  - Loss of personal independence in daily activities [Recovering/Resolving]
  - Device issue [Unknown]

NARRATIVE: CASE EVENT DATE: 2019
